FAERS Safety Report 26211129 (Version 1)
Quarter: 2025Q4

REPORT INFORMATION
  Report Type: Spontaneous
  Country: US (occurrence: US)
  Receive Date: 20251230
  Receipt Date: 20251230
  Transmission Date: 20260118
  Serious: No
  Sender: SANOFI AVENTIS
  Company Number: US-SA-2025SA386358

PATIENT
  Age: 57 Year
  Sex: Female

DRUGS (8)
  1. WAYRILZ [Suspect]
     Active Substance: RILZABRUTINIB
     Indication: Immune thrombocytopenia
     Dosage: 400 MG, BID
     Route: 048
  2. AMITRIPTYLINE [Concomitant]
     Active Substance: AMITRIPTYLINE
     Dosage: UNK
  3. CITALOPRAM HYDROBROMIDE [Concomitant]
     Active Substance: CITALOPRAM HYDROBROMIDE
     Dosage: UNK
  4. VITAMIN D NOS [Concomitant]
     Active Substance: CHOLECALCIFEROL\ERGOCALCIFEROL
     Dosage: UNK
  5. HYDROXYZINE [Concomitant]
     Active Substance: HYDROXYZINE HYDROCHLORIDE
     Dosage: UNK
  6. OXYCODONE [Concomitant]
     Active Substance: OXYCODONE
     Dosage: UNK
  7. PROAIR HFA [Concomitant]
     Active Substance: ALBUTEROL SULFATE
     Dosage: UNK
  8. TYLENOL [Concomitant]
     Active Substance: ACETAMINOPHEN
     Dosage: UNK

REACTIONS (7)
  - Influenza [Unknown]
  - Diarrhoea [Recovering/Resolving]
  - Headache [Recovering/Resolving]
  - Abdominal pain [Unknown]
  - Nausea [Recovering/Resolving]
  - Vomiting [Unknown]
  - Fatigue [Recovering/Resolving]
